FAERS Safety Report 13305747 (Version 1)
Quarter: 2017Q1

REPORT INFORMATION
  Report Type: Spontaneous
  Country: IT (occurrence: IT)
  Receive Date: 20170308
  Receipt Date: 20170308
  Transmission Date: 20170428
  Serious: Yes (Other)
  Sender: FDA-Public Use
  Company Number: IT-TEVA-746400ACC

PATIENT

DRUGS (2)
  1. CICLOSPORINA [Suspect]
     Active Substance: CYCLOSPORINE
  2. GEMFIBROZIL. [Suspect]
     Active Substance: GEMFIBROZIL

REACTIONS (2)
  - Rhabdomyolysis [Unknown]
  - Drug level increased [Unknown]
